FAERS Safety Report 4577738-9 (Version None)
Quarter: 2005Q1

REPORT INFORMATION
  Report Type: 
  Country: None (occurrence: None)
  Receive Date: 20050202
  Receipt Date: 20050118
  Transmission Date: 20050727
  Serious: Yes (Other)
  Sender: FDA-Public Use
  Company Number: 601341

PATIENT
  Age: 2 Year
  Sex: Male

DRUGS (2)
  1. ADVATE [Suspect]
     Indication: COAGULATION FACTOR VIII LEVEL ABNORMAL
     Dosage: PRN; INTRAVENOUS
     Route: 042
  2. ADVATE [Suspect]
     Indication: HAEMORRHAGE INTRACRANIAL
     Dosage: PRN; INTRAVENOUS
     Route: 042

REACTIONS (2)
  - CONVULSION [None]
  - HAEMORRHAGE INTRACRANIAL [None]
